FAERS Safety Report 6572229-8 (Version None)
Quarter: 2010Q1

REPORT INFORMATION
  Report Type: 
  Country: None (occurrence: None)
  Receive Date: 20100205
  Receipt Date: 20100129
  Transmission Date: 20100710
  Serious: Yes (Hospitalization)
  Sender: FDA-Public Use
  Company Number: PHHY2010JP05385

PATIENT
  Age: 58 Year
  Sex: Female

DRUGS (14)
  1. FAMCICLOVIR [Suspect]
     Indication: HERPES ZOSTER
     Dosage: 750 MG
     Route: 048
     Dates: start: 20100122, end: 20100122
  2. PENTOXYVERINE CITRATE [Concomitant]
  3. NIFEDIPINE [Concomitant]
  4. RABEPRAZOLE SODIUM [Concomitant]
  5. SENNA LEAF_ SENNA POD [Concomitant]
  6. ATORVASTATIN CALCIUM [Concomitant]
  7. SODIUM FERRATE CITRATE [Concomitant]
  8. ALLOPURINOL [Concomitant]
  9. ASPIRIN [Concomitant]
  10. LIMAPROST ALFADEX [Concomitant]
  11. CINACALCET HYDROCHLORIDE [Concomitant]
  12. LOSARTAN POTASSIUM [Concomitant]
  13. AMEZINIUM METILSULFATE [Concomitant]
  14. MECOBALAMIN [Suspect]

REACTIONS (1)
  - ALTERED STATE OF CONSCIOUSNESS [None]
